FAERS Safety Report 21959020 (Version 2)
Quarter: 2023Q1

REPORT INFORMATION
  Report Type: Spontaneous
  Country: IN (occurrence: IN)
  Receive Date: 20230206
  Receipt Date: 20230218
  Transmission Date: 20230417
  Serious: Yes (Other)
  Sender: FDA-Public Use
  Company Number: IN-BAXTER-2023BAX011780

PATIENT
  Age: 35 Year
  Sex: Female
  Weight: 60 kg

DRUGS (2)
  1. BUPIVACAINE [Suspect]
     Active Substance: BUPIVACAINE
     Indication: Nerve block
     Dosage: 8 ML, INJECTED IN THE FASCIAL PLANE IN THE FASCIAL PLANE JUST ABOVE THE PREVERTEBRAL MUSCLES AT THE
     Route: 065
  2. DEXMEDETOMIDINE [Concomitant]
     Active Substance: DEXMEDETOMIDINE
     Indication: Sedative therapy
     Dosage: 1 UG/KG/MIN
     Route: 065

REACTIONS (6)
  - Laryngeal nerve palsy [Recovered/Resolved]
  - Administration site extravasation [Recovered/Resolved]
  - Aphonia [Recovered/Resolved]
  - Cough [Recovered/Resolved]
  - Dysphonia [Recovered/Resolved]
  - Disease progression [Recovered/Resolved]
